FAERS Safety Report 7799553-5 (Version None)
Quarter: 2011Q4

REPORT INFORMATION
  Report Type: 
  Country: None (occurrence: None)
  Receive Date: 20111006
  Receipt Date: 20111006
  Transmission Date: 20120403
  Serious: Yes (Other)
  Sender: FDA-Public Use
  Company Number: None

PATIENT
  Sex: Male

DRUGS (1)
  1. GADOBENATE DIMEGLUMINE [Suspect]
     Dosage: 10 ML
     Route: 048

REACTIONS (5)
  - WHEEZING [None]
  - COUGH [None]
  - SENSATION OF FOREIGN BODY [None]
  - TONGUE DISORDER [None]
  - PARAESTHESIA ORAL [None]
